FAERS Safety Report 8030346 (Version 2)
Quarter: 2013Q4

REPORT INFORMATION
  Report Type: Spontaneous
  Country: SE (occurrence: SE)
  Receive Date: 20110712
  Receipt Date: 20131226
  Transmission Date: 20140711
  Serious: Yes (Other)
  Sender: FDA-Public Use
  Company Number: SE-ELI_LILLY_AND_COMPANY-US_010360854

PATIENT
  Age: 73 Year
  Sex: Female

DRUGS (2)
  1. OLANZAPINE [Suspect]
     Indication: SCHIZOPHRENIA
     Dosage: 10 MG, DAILY (1/D)
  2. PERPHENAZINE [Concomitant]
     Indication: SCHIZOPHRENIA
     Dosage: 16 MG, UNKNOWN

REACTIONS (5)
  - Hypothermia [Recovered/Resolved]
  - Somnolence [Unknown]
  - Hypotension [Unknown]
  - Electrocardiogram QT prolonged [Unknown]
  - Atrioventricular block first degree [Unknown]
